FAERS Safety Report 23087786 (Version 3)
Quarter: 2023Q4

REPORT INFORMATION
  Report Type: Report from Study
  Country: US (occurrence: US)
  Receive Date: 20231020
  Receipt Date: 20231026
  Transmission Date: 20240110
  Serious: Yes (Other)
  Sender: FDA-Public Use
  Company Number: US-ABBVIE-5454350

PATIENT
  Age: 60 Year
  Sex: Male

DRUGS (3)
  1. LUPRON DEPOT [Suspect]
     Active Substance: LEUPROLIDE ACETATE
     Indication: Product used for unknown indication
     Route: 065
     Dates: start: 19681017
  2. LUPRON DEPOT [Suspect]
     Active Substance: LEUPROLIDE ACETATE
     Route: 065
     Dates: start: 20031001
  3. LUPRON DEPOT [Suspect]
     Active Substance: LEUPROLIDE ACETATE
     Route: 065

REACTIONS (5)
  - Metastases to bone [Recovering/Resolving]
  - Dysphonia [Recovering/Resolving]
  - Night sweats [Unknown]
  - Hyperhidrosis [Not Recovered/Not Resolved]
  - Gait inability [Recovering/Resolving]

NARRATIVE: CASE EVENT DATE: 20031001
